FAERS Safety Report 8554735-X (Version None)
Quarter: 2012Q3

REPORT INFORMATION
  Report Type: 
  Country: None (occurrence: None)
  Receive Date: 20120731
  Receipt Date: 20120131
  Transmission Date: 20120928
  Serious: Yes (Other)
  Sender: FDA-Public Use
  Company Number: CHPA2012US013350

PATIENT
  Sex: Female

DRUGS (1)
  1. EXCEDRIN (MIGRAINE) [Suspect]
     Indication: MIGRAINE
     Dosage: UNK, FOR 20 YEARS
     Route: 048

REACTIONS (6)
  - NAUSEA [None]
  - REBOUND EFFECT [None]
  - HEADACHE [None]
  - DRUG DEPENDENCE [None]
  - TREMOR [None]
  - UNDERDOSE [None]
